FAERS Safety Report 9140929 (Version 2)
Quarter: 2013Q2

REPORT INFORMATION
  Report Type: Spontaneous
  Country: US (occurrence: US)
  Receive Date: 20130305
  Receipt Date: 20130418
  Transmission Date: 20140414
  Serious: Yes (Death, Hospitalization)
  Sender: FDA-Public Use
  Company Number: US-B.I. PHARMACEUTICALS,INC./RIDGEFIELD-2013-BI-05307BP

PATIENT
  Age: 86 Year
  Sex: Female

DRUGS (8)
  1. PRADAXA [Suspect]
     Indication: CEREBROVASCULAR ACCIDENT PROPHYLAXIS
     Dosage: 300 MG
     Dates: start: 201110
  2. PRADAXA [Suspect]
     Indication: ATRIAL FIBRILLATION
  3. DIGOXIN [Concomitant]
  4. AMIODARONE [Concomitant]
  5. MECLIZINE [Concomitant]
  6. ZOLOFT [Concomitant]
  7. NORVASC [Concomitant]
  8. XANAX [Concomitant]

REACTIONS (3)
  - Haemorrhage intracranial [Fatal]
  - Communication disorder [Unknown]
  - Communication disorder [Unknown]
